FAERS Safety Report 21059396 (Version 1)
Quarter: 2022Q3

REPORT INFORMATION
  Report Type: Spontaneous
  Country: US (occurrence: None)
  Receive Date: 20220708
  Receipt Date: 20220708
  Transmission Date: 20221026
  Serious: Yes (Hospitalization)
  Sender: FDA-Public Use
  Company Number: None

PATIENT
  Age: 53 Year
  Sex: Male

DRUGS (1)
  1. CUVITRU [Suspect]
     Active Substance: HUMAN IMMUNOGLOBULIN G
     Indication: Immunodeficiency common variable
     Dosage: OTHER QUANTITY : 10GM;?FREQUENCY : WEEKLY;?
     Route: 058
     Dates: start: 20210629

REACTIONS (3)
  - Pulmonary fibrosis [None]
  - Kidney fibrosis [None]
  - X-ray abnormal [None]

NARRATIVE: CASE EVENT DATE: 20220624
